FAERS Safety Report 6751445-6 (Version None)
Quarter: 2010Q2

REPORT INFORMATION
  Report Type: 
  Country: None (occurrence: None)
  Receive Date: 20100602
  Receipt Date: 20090914
  Transmission Date: 20101027
  Serious: Yes (Other)
  Sender: FDA-Public Use
  Company Number: US-ROCHE-657019

PATIENT
  Age: 50 Year
  Sex: Male

DRUGS (16)
  1. GANCICLOVIR SODIUM [Suspect]
     Indication: CYTOMEGALOVIRUS INFECTION
     Route: 042
  2. GANCICLOVIR SODIUM [Suspect]
     Dosage: ADDITIONAL COURSE
     Route: 042
  3. RITUXIMAB [Suspect]
     Indication: IDIOPATHIC THROMBOCYTOPENIC PURPURA
     Route: 065
  4. IMMUNE GLOBULIN INTRAVENOUS (HUMAN) [Suspect]
     Indication: IDIOPATHIC THROMBOCYTOPENIC PURPURA
     Dosage: MONOTHERAPY
     Route: 042
  5. IMMUNE GLOBULIN INTRAVENOUS (HUMAN) [Suspect]
     Dosage: COMBINATION THERAPY
     Route: 042
  6. IMMUNE GLOBULIN INTRAVENOUS (HUMAN) [Suspect]
     Dosage: ADDITIONAL IVIG
     Route: 042
  7. IMMUNE GLOBULIN INTRAVENOUS (HUMAN) [Suspect]
     Route: 042
  8. ANTI-D IMMUNOGLOBULIN [Suspect]
     Indication: IDIOPATHIC THROMBOCYTOPENIC PURPURA
     Dosage: COMBINATION TREATMENT
     Route: 042
  9. METHYLPREDNISOLONE [Suspect]
     Indication: IDIOPATHIC THROMBOCYTOPENIC PURPURA
     Dosage: COMBINATION THERAPY
     Route: 042
  10. VINCRISTINE [Suspect]
     Indication: IDIOPATHIC THROMBOCYTOPENIC PURPURA
     Route: 042
  11. AZATHIOPRINE SODIUM [Suspect]
     Indication: IDIOPATHIC THROMBOCYTOPENIC PURPURA
     Route: 065
  12. CYTOGAM [Suspect]
     Indication: CYTOMEGALOVIRUS INFECTION
     Route: 065
  13. DANAZOL [Suspect]
     Indication: IDIOPATHIC THROMBOCYTOPENIC PURPURA
     Route: 065
  14. ANTI-THYMOCYTE GLOBULIN NOS [Suspect]
     Indication: IDIOPATHIC THROMBOCYTOPENIC PURPURA
     Route: 065
  15. PREDNISONE TAB [Suspect]
     Dosage: GIVEN AS PULSE
     Route: 065
  16. ALBUTEROL [Concomitant]

REACTIONS (4)
  - AUTOIMMUNE THROMBOCYTOPENIA [None]
  - CONDITION AGGRAVATED [None]
  - CYTOMEGALOVIRUS INFECTION [None]
  - DRUG RESISTANCE [None]
